FAERS Safety Report 6196843-7 (Version None)
Quarter: 2009Q2

REPORT INFORMATION
  Report Type: 
  Country: None (occurrence: None)
  Receive Date: 20090520
  Receipt Date: 20090518
  Transmission Date: 20091009
  Serious: Yes (Hospitalization)
  Sender: FDA-Public Use
  Company Number: NL-ROXANE LABORATORIES, INC.-2009-RO-00510RO

PATIENT
  Age: 37 Year
  Sex: Male

DRUGS (2)
  1. METHADONE [Suspect]
  2. NALOXONE [Concomitant]
     Indication: OVERDOSE

REACTIONS (2)
  - OVERDOSE [None]
  - SUDDEN HEARING LOSS [None]
